FAERS Safety Report 6745181-X (Version None)
Quarter: 2010Q2

REPORT INFORMATION
  Report Type: 
  Country: None (occurrence: None)
  Receive Date: 20100526
  Receipt Date: 20100511
  Transmission Date: 20101027
  Serious: Yes (Hospitalization)
  Sender: FDA-Public Use
  Company Number: AUR-APL-2010-01315

PATIENT
  Age: 61 Year
  Sex: Female
  Weight: 69 kg

DRUGS (14)
  1. METOPROLOL TABLET [Suspect]
     Dosage: ORAL
     Route: 048
     Dates: start: 20100504, end: 20100506
  2. SITAXSENTAN (PFIZER) [Suspect]
     Dosage: 100MG, DAILY, ORAL
     Route: 048
     Dates: start: 20100118
  3. DILTIAZEM [Suspect]
     Dosage: ORAL
     Route: 048
     Dates: start: 20100504, end: 20100506
  4. SILDENAFIL [Suspect]
     Dosage: 20MG, TID, ORAL
     Route: 048
     Dates: start: 20100118
  5. ONDANSETRON IM [Concomitant]
  6. ACETAMINOPHEN [Concomitant]
  7. MORPHINE [Concomitant]
  8. CLINDAMYCIN [Concomitant]
  9. ACETAMINOPHEN AND CODEINE PHOSPHATE [Concomitant]
  10. DUCOSATE [Concomitant]
  11. ALPRAZOLAM [Concomitant]
  12. FUROSEMIDE [Concomitant]
  13. POTASSIUM CHLORIDE [Concomitant]
  14. LEVOTHYROXINE SODIUM [Concomitant]

REACTIONS (6)
  - ANAEMIA [None]
  - BRADYCARDIA [None]
  - BREAST CANCER [None]
  - HAEMORRHAGE [None]
  - HYPOTENSION [None]
  - POST PROCEDURAL HAEMATOMA [None]
